FAERS Safety Report 13941426 (Version 2)
Quarter: 2017Q3

REPORT INFORMATION
  Report Type: Spontaneous
  Country: DE (occurrence: DE)
  Receive Date: 20170906
  Receipt Date: 20170921
  Transmission Date: 20171127
  Serious: Yes (Life-Threatening, Hospitalization)
  Sender: FDA-Public Use
  Company Number: DE-JNJFOC-20170900449

PATIENT
  Age: 73 Year
  Sex: Male
  Weight: 70 kg

DRUGS (8)
  1. STELARA [Suspect]
     Active Substance: USTEKINUMAB
     Indication: PSORIASIS
     Route: 058
     Dates: start: 20150112
  2. ARIXTRA [Concomitant]
     Active Substance: FONDAPARINUX SODIUM
     Route: 058
  3. AMIODARONE [Concomitant]
     Active Substance: AMIODARONE
     Indication: ARRHYTHMIA
     Route: 065
  4. PANTOZOL [Concomitant]
     Active Substance: PANTOPRAZOLE SODIUM
     Indication: GASTROINTESTINAL DISORDER THERAPY
     Route: 065
  5. AMPHO MORONAL [Concomitant]
     Active Substance: AMPHOTERICIN B
     Indication: CANDIDA INFECTION
     Route: 065
  6. ACETYLSALICYLIC ACID [Concomitant]
     Active Substance: ASPIRIN
     Indication: ANTICOAGULANT THERAPY
     Route: 065
  7. FOLIC ACID. [Concomitant]
     Active Substance: FOLIC ACID
     Indication: FOLATE DEFICIENCY
     Route: 065
  8. MOVICOL [Concomitant]
     Active Substance: POLYETHYLENE GLYCOL 3350\POTASSIUM CHLORIDE\SODIUM BICARBONATE\SODIUM CHLORIDE
     Indication: CONSTIPATION
     Route: 065

REACTIONS (5)
  - Vena cava thrombosis [Unknown]
  - Off label use [Unknown]
  - Lung adenocarcinoma [Unknown]
  - Product use issue [Unknown]
  - Superior vena cava occlusion [Unknown]

NARRATIVE: CASE EVENT DATE: 20150112
